FAERS Safety Report 9608313 (Version 2)
Quarter: 2013Q4

REPORT INFORMATION
  Report Type: Spontaneous
  Country: IT (occurrence: IT)
  Receive Date: 20131009
  Receipt Date: 20131212
  Transmission Date: 20140711
  Serious: Yes (Other)
  Sender: FDA-Public Use
  Company Number: IT-ROCHE-1286385

PATIENT
  Age: 62 Year
  Sex: Male
  Weight: 66 kg

DRUGS (1)
  1. MABTHERA [Suspect]
     Indication: B-CELL UNCLASSIFIABLE LYMPHOMA HIGH GRADE
     Route: 041
     Dates: start: 20130730, end: 20130910

REACTIONS (3)
  - Laryngospasm [Recovered/Resolved]
  - Back pain [Recovered/Resolved]
  - Hypersensitivity [Recovered/Resolved]
